FAERS Safety Report 4462384-8 (Version None)
Quarter: 2004Q3

REPORT INFORMATION
  Report Type: 
  Country: None (occurrence: None)
  Receive Date: 20040923
  Receipt Date: 20040915
  Transmission Date: 20050211
  Serious: Yes (Life-Threatening, Hospitalization)
  Sender: FDA-Public Use
  Company Number: WAES 0312FRA00019

PATIENT
  Age: 12 Month
  Sex: Female

DRUGS (4)
  1. COSMEGEN [Suspect]
     Indication: NEPHROBLASTOMA
     Dosage: SEE IMAGE
     Route: 042
     Dates: start: 20020601, end: 20020601
  2. COSMEGEN [Suspect]
     Indication: NEPHROBLASTOMA
     Dosage: SEE IMAGE
     Route: 042
     Dates: start: 20021001, end: 20021001
  3. COSMEGEN [Suspect]
     Indication: NEPHROBLASTOMA
     Dosage: SEE IMAGE
     Route: 042
     Dates: start: 20020701, end: 20021001
  4. VINCRISTINE SULFATE [Concomitant]

REACTIONS (8)
  - ACCIDENTAL OVERDOSE [None]
  - ANURIA [None]
  - HAEMODIALYSIS [None]
  - MEDICATION ERROR [None]
  - NERVOUS SYSTEM DISORDER [None]
  - RENAL FAILURE ACUTE [None]
  - TOXIC SHOCK SYNDROME [None]
  - VOMITING [None]
